FAERS Safety Report 4848485-0 (Version None)
Quarter: 2005Q4

REPORT INFORMATION
  Report Type: 
  Country: None (occurrence: None)
  Receive Date: 20051208
  Receipt Date: 20051124
  Transmission Date: 20060501
  Serious: Yes (Other)
  Sender: FDA-Public Use
  Company Number: PHBS2005ES17528

PATIENT
  Age: 73 Year
  Sex: Female

DRUGS (4)
  1. ZOMETA [Suspect]
     Indication: MULTIPLE MYELOMA
     Dosage: 4 MG, QMO
     Dates: start: 20040201, end: 20050501
  2. HYDROXYCARBAMIDE [Concomitant]
  3. ANTIACID [Concomitant]
  4. SUPIRIDE [Concomitant]

REACTIONS (4)
  - BONE SCAN ABNORMAL [None]
  - OSTEONECROSIS [None]
  - PAIN IN JAW [None]
  - TOOTH LOSS [None]
